FAERS Safety Report 16964059 (Version 2)
Quarter: 2019Q4

REPORT INFORMATION
  Report Type: Spontaneous
  Country: DE (occurrence: DE)
  Receive Date: 20191026
  Receipt Date: 20191112
  Transmission Date: 20200122
  Serious: Yes (Other)
  Sender: FDA-Public Use
  Company Number: DE-AMGEN-DEUSP2018173351

PATIENT
  Age: 77 Year
  Sex: Female
  Weight: 53 kg

DRUGS (4)
  1. TORASEMIDE [Concomitant]
     Active Substance: TORSEMIDE
     Indication: CARDIAC FAILURE
     Dosage: UNK
     Route: 048
  2. ENTRESTO [Suspect]
     Active Substance: SACUBITRIL\VALSARTAN
     Indication: CARDIAC FAILURE
     Dosage: 1 DOSAGE FORM, BID
     Route: 048
     Dates: start: 2018
  3. PROCORALAN [Suspect]
     Active Substance: IVABRADINE
     Indication: HEART RATE INCREASED
     Dosage: 5 MILLIGRAM, BID
     Route: 048
     Dates: end: 201905
  4. NOVAMINSULFON [Concomitant]
     Active Substance: METAMIZOLE
     Indication: FRACTURE PAIN
     Dosage: 1 DOSAGE FORM, PRN
     Route: 048

REACTIONS (3)
  - Atrial fibrillation [Unknown]
  - Micturition urgency [Not Recovered/Not Resolved]
  - Osmotic demyelination syndrome [Unknown]

NARRATIVE: CASE EVENT DATE: 201811
